FAERS Safety Report 15642163 (Version 1)
Quarter: 2018Q4

REPORT INFORMATION
  Report Type: Spontaneous
  Country: NL (occurrence: NL)
  Receive Date: 20181121
  Receipt Date: 20181121
  Transmission Date: 20190205
  Serious: Yes (Hospitalization)
  Sender: FDA-Public Use
  Company Number: NL-BRISTOL-MYERS SQUIBB COMPANY-BMS-2018-109594

PATIENT
  Age: 39 Year
  Sex: Male
  Weight: 84 kg

DRUGS (1)
  1. KENACORT-A [Suspect]
     Active Substance: TRIAMCINOLONE
     Indication: BURSITIS
     Dosage: 1 DF, UNK
     Route: 065
     Dates: start: 20180717

REACTIONS (2)
  - Abscess [Recovering/Resolving]
  - Erythema [Recovering/Resolving]

NARRATIVE: CASE EVENT DATE: 20180719
